FAERS Safety Report 9890958 (Version 2)
Quarter: 2014Q1

REPORT INFORMATION
  Report Type: Report from Study
  Country: DE (occurrence: DE)
  Receive Date: 20140212
  Receipt Date: 20140213
  Transmission Date: 20141002
  Serious: Yes (Death, Hospitalization)
  Sender: FDA-Public Use
  Company Number: DE-ABBVIE-14P-062-1199187-00

PATIENT
  Sex: Female

DRUGS (8)
  1. HUMIRA [Suspect]
     Indication: PRODUCT USED FOR UNKNOWN INDICATION
     Dates: start: 200903, end: 200903
  2. HUMIRA [Suspect]
     Dates: start: 200903, end: 200903
  3. HUMIRA [Suspect]
     Dates: start: 200905, end: 200906
  4. HUMIRA [Suspect]
     Dates: start: 201005, end: 201007
  5. ROACTEMRA [Suspect]
     Indication: PRODUCT USED FOR UNKNOWN INDICATION
     Dates: start: 201302
  6. RITUXIMAB [Suspect]
     Indication: PRODUCT USED FOR UNKNOWN INDICATION
     Dates: start: 20111117, end: 20120910
  7. MTX [Concomitant]
     Indication: RHEUMATOID ARTHRITIS
  8. LEFLUNOMIDE [Concomitant]
     Indication: RHEUMATOID ARTHRITIS

REACTIONS (3)
  - Death [Fatal]
  - Femoral neck fracture [Unknown]
  - Hip arthroplasty [Unknown]
